FAERS Safety Report 12946149 (Version 1)
Quarter: 2016Q4

REPORT INFORMATION
  Report Type: Spontaneous
  Country: AE (occurrence: AE)
  Receive Date: 20161116
  Receipt Date: 20161116
  Transmission Date: 20170207
  Serious: Yes (Life-Threatening)
  Sender: FDA-Public Use
  Company Number: AE-ASTRAZENECA-2016SF17651

PATIENT
  Sex: Male

DRUGS (3)
  1. TERESBA [Concomitant]
  2. XIGDUO XR [Suspect]
     Active Substance: DAPAGLIFLOZIN PROPANEDIOL\METFORMIN HYDROCHLORIDE
     Indication: TYPE 2 DIABETES MELLITUS
     Dosage: 5/1000, TWO TIMES A DAY
     Route: 048
     Dates: start: 20160523, end: 20161107
  3. LIVAZO [Concomitant]
     Active Substance: PITAVASTATIN CALCIUM

REACTIONS (1)
  - Ketonuria [Unknown]

NARRATIVE: CASE EVENT DATE: 20161106
